FAERS Safety Report 4633425-X (Version None)
Quarter: 2005Q2

REPORT INFORMATION
  Report Type: 
  Country: None (occurrence: None)
  Receive Date: 20050412
  Receipt Date: 20050407
  Transmission Date: 20051028
  Serious: Yes (Hospitalization, Disabling, Other)
  Sender: FDA-Public Use
  Company Number: US-MERCK-0504USA00936

PATIENT
  Age: 49 Year
  Sex: Female

DRUGS (3)
  1. VYTORIN [Suspect]
     Indication: BLOOD CHOLESTEROL INCREASED
     Route: 048
  2. INSULIN [Concomitant]
     Route: 065
  3. LISINOPRIL [Concomitant]
     Route: 065

REACTIONS (5)
  - MYALGIA [None]
  - PANCREATITIS ACUTE [None]
  - PYREXIA [None]
  - THROMBOCYTOPENIA [None]
  - URINARY TRACT INFECTION [None]
